FAERS Safety Report 15960472 (Version 2)
Quarter: 2019Q1

REPORT INFORMATION
  Report Type: Spontaneous
  Country: FR (occurrence: FR)
  Receive Date: 20190214
  Receipt Date: 20190219
  Transmission Date: 20190417
  Serious: Yes (Other)
  Sender: FDA-Public Use
  Company Number: FR-BRISTOL-MYERS SQUIBB COMPANY-BMS-2019-013995

PATIENT
  Sex: Female
  Weight: 87 kg

DRUGS (22)
  1. OMEPRAZOLE. [Suspect]
     Active Substance: OMEPRAZOLE
     Indication: PROPHYLAXIS
     Dosage: 20 MG, UNK
     Route: 048
  2. ZOPICLONE [Suspect]
     Active Substance: ZOPICLONE
     Indication: INSOMNIA
     Route: 065
  3. LODOZ [Suspect]
     Active Substance: BISOPROLOL FUMARATE\HYDROCHLOROTHIAZIDE
     Indication: HYPERTENSION
     Dosage: 1 DF, UNK
     Route: 048
  4. PEGASYS [Suspect]
     Active Substance: PEGINTERFERON ALFA-2A
     Indication: ESSENTIAL THROMBOCYTHAEMIA
     Dosage: 90 ?G, UNK
     Route: 058
     Dates: start: 20160131
  5. METFORMIN HYDROCHLORIDE. [Suspect]
     Active Substance: METFORMIN HYDROCHLORIDE
     Indication: DIABETES MELLITUS
     Dosage: 2550 MG, UNK
     Route: 048
  6. OMEPRAZOLE. [Suspect]
     Active Substance: OMEPRAZOLE
     Indication: PROPHYLAXIS
     Route: 065
  7. IXPRIM [Suspect]
     Active Substance: ACETAMINOPHEN\TRAMADOL HYDROCHLORIDE
     Indication: PAIN
     Route: 065
  8. JANUVIA [Suspect]
     Active Substance: SITAGLIPTIN PHOSPHATE
     Indication: DIABETES MELLITUS
     Dosage: 50 MG, UNK
     Route: 048
  9. ZOPICLONE [Suspect]
     Active Substance: ZOPICLONE
     Indication: INSOMNIA
     Dosage: 3.75 MG, UNK
     Route: 048
  10. FEMARA [Suspect]
     Active Substance: LETROZOLE
     Indication: BREAST CANCER
     Dosage: 2.5 MG, UNK
     Route: 048
     Dates: start: 20160820
  11. IXPRIM [Suspect]
     Active Substance: ACETAMINOPHEN\TRAMADOL HYDROCHLORIDE
     Indication: PAIN
     Dosage: 3 DF, UNK
     Route: 048
  12. PARACETAMOL [Suspect]
     Active Substance: ACETAMINOPHEN
     Indication: PAIN
     Dosage: 2 G, Q2WK
     Route: 048
  13. BICIRKAN [Suspect]
     Active Substance: ASCORBIC ACID\HESPERIDIN METHYLCHALCONE\RUSCUS ACULEATUS ROOT
     Indication: PERIPHERAL VENOUS DISEASE
     Dosage: 2 DF, UNK
     Route: 048
  14. MAGNE B6 [Suspect]
     Active Substance: MAGNESIUM\PYRIDOXINE
     Indication: PROPHYLAXIS
     Dosage: 2 DF, UNK
     Route: 048
  15. XANAX [Suspect]
     Active Substance: ALPRAZOLAM
     Indication: ANXIETY
     Route: 065
  16. TEMESTA                            /00273201/ [Suspect]
     Active Substance: LORAZEPAM
     Indication: ANXIETY
     Dosage: 1 DF, UNK
     Route: 048
  17. COMPLEMENT (NAPROXEN SODIUM) [Suspect]
     Active Substance: NAPROXEN SODIUM
     Indication: INSOMNIA
     Dosage: 1 DF, UNK
     Route: 048
  18. LACTULOSE. [Suspect]
     Active Substance: LACTULOSE
     Indication: CONSTIPATION
     Dosage: 2 DF, UNK
     Route: 048
  19. MICARDIS [Suspect]
     Active Substance: TELMISARTAN
     Indication: HYPERTENSION
     Dosage: 1 DF, UNK
     Route: 048
  20. ASPEGIC                            /00002701/ [Suspect]
     Active Substance: ASPIRIN
     Indication: CARDIOVASCULAR EVENT PROPHYLAXIS
     Dosage: 1 DF, UNK
     Route: 048
  21. ZYMAD [Suspect]
     Active Substance: CHOLECALCIFEROL
     Indication: PROPHYLAXIS
     Dosage: 1 DF, UNK
     Route: 048
  22. XANAX [Suspect]
     Active Substance: ALPRAZOLAM
     Indication: ANXIETY
     Dosage: 1 DF, UNK
     Route: 048

REACTIONS (15)
  - Trigger finger [Recovered/Resolved]
  - Weight decreased [Not Recovered/Not Resolved]
  - Gamma-glutamyltransferase increased [Not Recovered/Not Resolved]
  - Insomnia [Not Recovered/Not Resolved]
  - Arthralgia [Not Recovered/Not Resolved]
  - Asthenia [Not Recovered/Not Resolved]
  - Hyperhidrosis [Not Recovered/Not Resolved]
  - Hot flush [Not Recovered/Not Resolved]
  - Irritability [Not Recovered/Not Resolved]
  - Urinary tract infection [Not Recovered/Not Resolved]
  - Anxiety [Not Recovered/Not Resolved]
  - Mucosal dryness [Not Recovered/Not Resolved]
  - Nausea [Not Recovered/Not Resolved]
  - Headache [Not Recovered/Not Resolved]
  - Pruritus [Not Recovered/Not Resolved]

NARRATIVE: CASE EVENT DATE: 2017
